FAERS Safety Report 10042322 (Version 1)
Quarter: 2014Q1

REPORT INFORMATION
  Report Type: Report from Study
  Country: GB (occurrence: GB)
  Receive Date: 20140327
  Receipt Date: 20140327
  Transmission Date: 20141002
  Serious: Yes (Hospitalization)
  Sender: FDA-Public Use
  Company Number: GB-009507513-1403GBR011781

PATIENT
  Sex: Male

DRUGS (4)
  1. VORINOSTAT [Suspect]
     Indication: ACUTE MYELOID LEUKAEMIA
     Dosage: 300 MG, BID, CURRENT CYCLE 2
     Route: 048
     Dates: start: 20131120, end: 20131220
  2. VORINOSTAT [Suspect]
     Indication: MYELODYSPLASTIC SYNDROME
  3. AZACITIDINE [Suspect]
     Indication: ACUTE MYELOID LEUKAEMIA
     Dosage: 135 MG, QD, CURRENT CYCLE 2
     Route: 058
     Dates: start: 20131118, end: 20131220
  4. AZACITIDINE [Suspect]
     Indication: MYELODYSPLASTIC SYNDROME

REACTIONS (1)
  - Pain [Recovered/Resolved with Sequelae]
